FAERS Safety Report 9109059 (Version 3)
Quarter: 2013Q2

REPORT INFORMATION
  Report Type: Report from Study
  Country: GR (occurrence: GR)
  Receive Date: 20130125
  Receipt Date: 20130404
  Transmission Date: 20140414
  Serious: Yes (Death, Life-Threatening, Hospitalization, Disabling)
  Sender: FDA-Public Use
  Company Number: PHHY2012GR102430

PATIENT
  Age: 49 Year
  Sex: Male
  Weight: 75 kg

DRUGS (1)
  1. FTY 720 [Suspect]
     Indication: MULTIPLE SCLEROSIS
     Dosage: 1 DF, QD
     Route: 048
     Dates: start: 20120813, end: 20121101

REACTIONS (8)
  - Encephalitis autoimmune [Fatal]
  - Vital functions abnormal [Fatal]
  - Multiple sclerosis relapse [Not Recovered/Not Resolved]
  - Nuclear magnetic resonance imaging brain abnormal [Not Recovered/Not Resolved]
  - Ataxia [Not Recovered/Not Resolved]
  - Expanded disability status scale score increased [Unknown]
  - Acinetobacter test positive [Unknown]
  - CSF protein increased [Unknown]
